FAERS Safety Report 15455774 (Version 1)
Quarter: 2018Q4

REPORT INFORMATION
  Report Type: Report from Study
  Country: CA (occurrence: CA)
  Receive Date: 20181002
  Receipt Date: 20181002
  Transmission Date: 20190204
  Serious: Yes (Other)
  Sender: FDA-Public Use
  Company Number: CA-JNJFOC-20180837017

PATIENT
  Age: 70 Year
  Sex: Female
  Weight: 99.9 kg

DRUGS (2)
  1. STELARA [Suspect]
     Active Substance: USTEKINUMAB
     Indication: PSORIASIS
     Dosage: STRENGTH = 90 MG
     Route: 058
     Dates: start: 20180824
  2. STELARA [Suspect]
     Active Substance: USTEKINUMAB
     Indication: RHEUMATOID ARTHRITIS
     Dosage: STRENGTH = 90 MG
     Route: 058
     Dates: start: 20180824

REACTIONS (3)
  - Product prescribing error [Unknown]
  - Off label use [Unknown]
  - Cellulitis [Unknown]

NARRATIVE: CASE EVENT DATE: 201809
